FAERS Safety Report 4982165-6 (Version None)
Quarter: 2006Q2

REPORT INFORMATION
  Report Type: 
  Country: None (occurrence: None)
  Receive Date: 20060419
  Receipt Date: 20060328
  Transmission Date: 20061013
  Serious: Yes (Other)
  Sender: FDA-Public Use
  Company Number: US200603006846

PATIENT
  Age: 77 Year
  Sex: Female

DRUGS (6)
  1. HUMALOG MIX 75/25 [Suspect]
     Indication: DIABETES MELLITUS
     Dates: start: 19990101
  2. HUMULIN N [Suspect]
     Indication: DIABETES MELLITUS
     Dates: start: 19990101
  3. HUMALOG MIX 75/25 [Suspect]
     Indication: DIABETES MELLITUS
     Dates: start: 20050101
  4. HUMULIN N [Suspect]
     Indication: DIABETES MELLITUS
     Dates: start: 20050101
  5. HUMALOG MIX [Concomitant]
  6. HUMULIN N [Concomitant]

REACTIONS (4)
  - ARTERIOSCLEROSIS [None]
  - BLOOD CHOLESTEROL INCREASED [None]
  - HYPERTENSION [None]
  - LIMB INJURY [None]
